FAERS Safety Report 23746306 (Version 1)
Quarter: 2024Q2

REPORT INFORMATION
  Report Type: Spontaneous
  Country: CA (occurrence: CA)
  Receive Date: 20240416
  Receipt Date: 20240416
  Transmission Date: 20240715
  Serious: Yes (Other)
  Sender: FDA-Public Use
  Company Number: CA-AUROBINDO-AUR-APL-2024-002929

PATIENT
  Age: 76 Year
  Sex: Male

DRUGS (2)
  1. TADALAFIL [Suspect]
     Active Substance: TADALAFIL
     Indication: Erectile dysfunction
     Dosage: 20 MILLIGRAM
     Route: 048
  2. TADALAFIL [Suspect]
     Active Substance: TADALAFIL
     Dosage: 20 MILLIGRAM
     Route: 048

REACTIONS (3)
  - Cataract [Recovered/Resolved]
  - Suspected product tampering [Recovered/Resolved]
  - Drug ineffective [Recovered/Resolved]
